FAERS Safety Report 23191698 (Version 1)
Quarter: 2023Q4

REPORT INFORMATION
  Report Type: Spontaneous
  Country: US (occurrence: None)
  Receive Date: 20231115
  Receipt Date: 20231115
  Transmission Date: 20240109
  Serious: Yes (Life-Threatening)
  Sender: FDA-Public Use
  Company Number: None

PATIENT
  Age: 58 Year
  Sex: Female
  Weight: 88.2 kg

DRUGS (1)
  1. WAKIX [Suspect]
     Active Substance: PITOLISANT HYDROCHLORIDE
     Indication: Somnolence
     Dosage: OTHER QUANTITY : 1 TABLET(S);?
     Route: 048
     Dates: start: 20231104, end: 20231111

REACTIONS (8)
  - Palpitations [None]
  - Feeling abnormal [None]
  - Dyspnoea [None]
  - Abnormal faeces [None]
  - Urinary retention [None]
  - Insomnia [None]
  - Cough [None]
  - Dry throat [None]

NARRATIVE: CASE EVENT DATE: 20231110
